FAERS Safety Report 9770264 (Version 1)
Quarter: 2013Q4

REPORT INFORMATION
  Report Type: Spontaneous
  Country: CA (occurrence: CA)
  Receive Date: 20131218
  Receipt Date: 20131218
  Transmission Date: 20140711
  Serious: Yes (Hospitalization)
  Sender: FDA-Public Use
  Company Number: CA-GLAXOSMITHKLINE-A1053137A

PATIENT
  Age: 70 Year
  Sex: Female

DRUGS (1)
  1. BENLYSTA [Suspect]
     Indication: SYSTEMIC LUPUS ERYTHEMATOSUS
     Dosage: 730MG SEE DOSAGE TEXT
     Route: 042
     Dates: start: 20130523, end: 20131119

REACTIONS (6)
  - Nausea [Unknown]
  - Decreased appetite [Unknown]
  - Dizziness [Unknown]
  - Weight decreased [Unknown]
  - Jaundice [Unknown]
  - Hepatitis [Unknown]
